FAERS Safety Report 10273414 (Version 1)
Quarter: 2014Q2

REPORT INFORMATION
  Report Type: Spontaneous
  Country: US (occurrence: None)
  Receive Date: 20140630
  Receipt Date: 20140630
  Transmission Date: 20141212
  Serious: Yes (Hospitalization, Other)
  Sender: FDA-Public Use
  Company Number: 2014AP003477

PATIENT
  Age: 69 Year
  Sex: Male

DRUGS (4)
  1. MIRTAZAPINE [Suspect]
     Indication: INSOMNIA
  2. PROPAFENONE (PROPAFENONE) [Suspect]
     Indication: ATRIAL FIBRILLATION
  3. ASPIRIN (ACETYLSALICYLIC ACID) [Concomitant]
  4. MULTIVITAMIN (MULTIVITAMIN) [Concomitant]

REACTIONS (8)
  - Bundle branch block right [None]
  - Drug interaction [None]
  - Sinus bradycardia [None]
  - Electrocardiogram QRS complex prolonged [None]
  - Electrocardiogram QT prolonged [None]
  - Toxicity to various agents [None]
  - Convulsion [None]
  - Hypotension [None]
